FAERS Safety Report 15136647 (Version 1)
Quarter: 2018Q3

REPORT INFORMATION
  Report Type: Spontaneous
  Country: JP (occurrence: JP)
  Receive Date: 20180712
  Receipt Date: 20180712
  Transmission Date: 20181010
  Serious: Yes (Death, Hospitalization, Other)
  Sender: FDA-Public Use
  Company Number: JP-009507513-1706JPN001865J

PATIENT
  Age: 72 Year
  Sex: Male
  Weight: 59 kg

DRUGS (3)
  1. PROMAC [Concomitant]
     Active Substance: NITROFURANTOIN
     Indication: PROPHYLAXIS
     Dosage: 75 MG, BID
     Route: 048
  2. KEYTRUDA [Suspect]
     Active Substance: PEMBROLIZUMAB
     Indication: LUNG ADENOCARCINOMA
     Dosage: 200 MG, EVERY 4 WEEKS
     Route: 041
     Dates: start: 20170608, end: 20180412
  3. HIBON [Concomitant]
     Active Substance: RIBOFLAVIN
     Indication: PROPHYLAXIS
     Dosage: 20 MG, BID
     Route: 048

REACTIONS (2)
  - Cerebral infarction [Fatal]
  - Tumour associated fever [Recovering/Resolving]

NARRATIVE: CASE EVENT DATE: 20170608
